FAERS Safety Report 17179828 (Version 4)
Quarter: 2020Q1

REPORT INFORMATION
  Report Type: Spontaneous
  Country: US (occurrence: US)
  Receive Date: 20191220
  Receipt Date: 20200302
  Transmission Date: 20200409
  Serious: Yes (Other)
  Sender: FDA-Public Use
  Company Number: US-TEVA-2019-US-1154307

PATIENT
  Age: 69 Year
  Sex: Male

DRUGS (12)
  1. VALSARTAN. [Concomitant]
     Active Substance: VALSARTAN
  2. SERTRALINE HCL [Concomitant]
     Active Substance: SERTRALINE HYDROCHLORIDE
  3. ROSUVASTATIN CALCIUM. [Concomitant]
     Active Substance: ROSUVASTATIN CALCIUM
  4. SYNRIBO [Suspect]
     Active Substance: OMACETAXINE MEPESUCCINATE
     Indication: CHRONIC MYELOID LEUKAEMIA
     Dosage: 2.36 MG/0.67ML , 1 TIME DAILY ON MON,WED,FRI FOR 2 WEEKS OF A 28 DAY CYCLE
     Route: 065
     Dates: start: 20190708
  5. PLAVIX [Concomitant]
     Active Substance: CLOPIDOGREL BISULFATE
  6. SYNRIBO [Suspect]
     Active Substance: OMACETAXINE MEPESUCCINATE
     Dosage: 2.36 MG/0.67ML , DAILY ON MON,WED,FRI*2 WEEKS OF 28 DAYS CYCLE
     Route: 065
     Dates: start: 20191209
  7. AMLODIPINE BESYLATE. [Concomitant]
     Active Substance: AMLODIPINE BESYLATE
  8. CARVEDILOL. [Concomitant]
     Active Substance: CARVEDILOL
  9. NIACIN. [Concomitant]
     Active Substance: NIACIN
  10. FUROSEMIDE. [Concomitant]
     Active Substance: FUROSEMIDE
  11. OMEGA 3 [Concomitant]
     Active Substance: OMEGA-3 FATTY ACIDS
  12. POTASSIUM [Concomitant]
     Active Substance: POTASSIUM

REACTIONS (6)
  - Musculoskeletal discomfort [Unknown]
  - Chronic kidney disease [Unknown]
  - Musculoskeletal pain [Unknown]
  - Fatigue [Unknown]
  - Asthenia [Unknown]
  - Fall [Unknown]

NARRATIVE: CASE EVENT DATE: 201912
